FAERS Safety Report 4267290-X (Version None)
Quarter: 2004Q1

REPORT INFORMATION
  Report Type: 
  Country: None (occurrence: None)
  Receive Date: 20040108
  Receipt Date: 20031229
  Transmission Date: 20041129
  Serious: Yes (Hospitalization)
  Sender: FDA-Public Use
  Company Number: WAES 0312NOR00019

PATIENT
  Age: 77 Year
  Sex: Female

DRUGS (3)
  1. ASPIRIN AND MAGNESIUM OXIDE [Concomitant]
     Indication: ATRIAL FIBRILLATION
     Route: 048
     Dates: start: 20030401
  2. VIOXX [Suspect]
     Route: 048
     Dates: start: 20030501, end: 20031107
  3. VIOXX [Suspect]
     Route: 048
     Dates: start: 20031107, end: 20031113

REACTIONS (5)
  - DUODENAL ULCER [None]
  - HAEMATEMESIS [None]
  - HAEMOGLOBIN DECREASED [None]
  - HELICOBACTER INFECTION [None]
  - MELAENA [None]
